FAERS Safety Report 23435023 (Version 1)
Quarter: 2024Q1

REPORT INFORMATION
  Report Type: Spontaneous
  Country: US (occurrence: US)
  Receive Date: 20240123
  Receipt Date: 20240123
  Transmission Date: 20240409
  Serious: No
  Sender: FDA-Public Use
  Company Number: US-NOVOPROD-1094873

PATIENT
  Age: 46 Year
  Sex: Female

DRUGS (1)
  1. WEGOVY [Suspect]
     Active Substance: SEMAGLUTIDE
     Indication: Obesity
     Dosage: 2.4 WEEKLY
     Route: 058
     Dates: start: 20230402

REACTIONS (2)
  - Paraesthesia [Not Recovered/Not Resolved]
  - Skin burning sensation [Not Recovered/Not Resolved]

NARRATIVE: CASE EVENT DATE: 20230606
